FAERS Safety Report 18338077 (Version 1)
Quarter: 2020Q4

REPORT INFORMATION
  Report Type: Spontaneous
  Country: US (occurrence: US)
  Receive Date: 20201001
  Receipt Date: 20201001
  Transmission Date: 20210113
  Serious: Yes (Disabling)
  Sender: FDA-Public Use
  Company Number: None

PATIENT
  Age: 46 Year
  Sex: Female

DRUGS (1)
  1. NATURE-THROID [Suspect]
     Active Substance: THYROID, PORCINE
     Indication: HYPOTHYROIDISM
     Dosage: ?          QUANTITY:2 TABLET(S);?
     Route: 048
     Dates: end: 20201001

REACTIONS (7)
  - Weight increased [None]
  - Alopecia [None]
  - Autoimmune thyroiditis [None]
  - Illness [None]
  - Condition aggravated [None]
  - Urticaria [None]
  - Impaired work ability [None]

NARRATIVE: CASE EVENT DATE: 20200704
